FAERS Safety Report 18460921 (Version 1)
Quarter: 2020Q4

REPORT INFORMATION
  Report Type: Spontaneous
  Country: CN (occurrence: CN)
  Receive Date: 20201104
  Receipt Date: 20201104
  Transmission Date: 20210114
  Serious: Yes (Other)
  Sender: FDA-Public Use
  Company Number: CN-ROCHE-2706961

PATIENT
  Age: 24 Year
  Sex: Male

DRUGS (2)
  1. AVASTIN [Suspect]
     Active Substance: BEVACIZUMAB
     Indication: HEPATOCELLULAR CARCINOMA
     Route: 065
     Dates: start: 20200715
  2. TECENTRIQ [Suspect]
     Active Substance: ATEZOLIZUMAB
     Indication: HEPATOCELLULAR CARCINOMA
     Route: 065
     Dates: start: 20200715

REACTIONS (6)
  - Product use in unapproved indication [Unknown]
  - Haematemesis [Unknown]
  - Haemorrhage [Unknown]
  - Off label use [Unknown]
  - Melaena [Unknown]
  - Gastrointestinal haemorrhage [Unknown]
